FAERS Safety Report 7533592-4 (Version None)
Quarter: 2011Q2

REPORT INFORMATION
  Report Type: 
  Country: None (occurrence: None)
  Receive Date: 20110608
  Receipt Date: 20060223
  Transmission Date: 20111010
  Serious: Yes (Hospitalization, Other)
  Sender: FDA-Public Use
  Company Number: PHHO2006BR01444

PATIENT
  Age: 78 Year
  Sex: Female
  Weight: 78 kg

DRUGS (2)
  1. SIMVASTATIN [Concomitant]
     Indication: BLOOD CHOLESTEROL INCREASED
  2. DIOVAN HCT [Suspect]
     Indication: HYPERTENSION
     Dosage: 172.5 MG, QD
     Route: 048

REACTIONS (3)
  - CATHETERISATION CARDIAC [None]
  - ARTERIAL OCCLUSIVE DISEASE [None]
  - PAIN [None]
